FAERS Safety Report 8729589 (Version 2)
Quarter: 2012Q4

REPORT INFORMATION
  Report Type: Report from Study
  Country: CA (occurrence: CA)
  Receive Date: 20120817
  Receipt Date: 20120904
  Transmission Date: 20130627
  Serious: Yes (Other)
  Sender: FDA-Public Use
  Company Number: CA-ROCHE-1101066

PATIENT
  Age: 41 Year
  Sex: Female
  Weight: 47 kg

DRUGS (12)
  1. AVASTIN [Suspect]
     Indication: GLIOBLASTOMA
     Route: 042
     Dates: start: 20120611
  2. AVASTIN [Suspect]
     Route: 042
     Dates: start: 20120730
  3. AVASTIN [Suspect]
     Route: 042
     Dates: start: 20120813, end: 20120813
  4. TEGRETOL [Concomitant]
  5. DECADRON [Concomitant]
  6. KEPPRA [Concomitant]
  7. DOCUSATE [Concomitant]
  8. ZANTAC [Concomitant]
  9. PANTOLOC [Concomitant]
  10. DIPHENHYDRAMINE HCL [Concomitant]
     Indication: PREMEDICATION
     Route: 048
     Dates: start: 20120813, end: 20120813
  11. ACETAMINOPHEN [Concomitant]
     Indication: PREMEDICATION
     Route: 048
     Dates: start: 20120813, end: 20120813
  12. METHYLPREDNISOLONE [Concomitant]
     Indication: PREMEDICATION
     Route: 042
     Dates: start: 20120813, end: 20120813

REACTIONS (10)
  - Metastasis [Not Recovered/Not Resolved]
  - General physical health deterioration [Not Recovered/Not Resolved]
  - Poverty of speech [Not Recovered/Not Resolved]
  - Cognitive disorder [Not Recovered/Not Resolved]
  - Weight decreased [Not Recovered/Not Resolved]
  - Weight increased [Unknown]
  - Anaemia [Unknown]
  - Fatigue [Unknown]
  - Injection site pain [Unknown]
  - Nausea [Unknown]
